FAERS Safety Report 6889607-X (Version None)
Quarter: 2010Q3

REPORT INFORMATION
  Report Type: 
  Country: None (occurrence: None)
  Receive Date: 20100730
  Receipt Date: 20080314
  Transmission Date: 20110219
  Serious: Yes (Other)
  Sender: FDA-Public Use
  Company Number: US-PFIZER INC-2008023940

PATIENT
  Sex: Male
  Weight: 93.4 kg

DRUGS (3)
  1. LIPITOR [Suspect]
     Indication: BLOOD CHOLESTEROL INCREASED
  2. NEXIUM [Concomitant]
  3. XANAX [Concomitant]
     Dosage: AS AND WHEN NEEDED

REACTIONS (3)
  - ASTHMA [None]
  - HYPOAESTHESIA [None]
  - PARAESTHESIA [None]
